FAERS Safety Report 6220760-7 (Version None)
Quarter: 2009Q2

REPORT INFORMATION
  Report Type: 
  Country: None (occurrence: None)
  Receive Date: 20090610
  Receipt Date: 20090608
  Transmission Date: 20091009
  Serious: Yes (Hospitalization)
  Sender: FDA-Public Use
  Company Number: GB-BAYER-200813053BNE

PATIENT
  Age: 69 Year
  Sex: Female
  Weight: 60 kg

DRUGS (14)
  1. SORAFENIB [Suspect]
     Indication: RENAL CANCER METASTATIC
     Dosage: TOTAL DAILY DOSE: 800 MG
     Route: 048
     Dates: start: 20081002, end: 20081016
  2. ATENOLOL [Concomitant]
     Indication: HYPERTENSION
     Route: 048
     Dates: start: 20020401, end: 20081030
  3. IRBESARTAN [Concomitant]
     Indication: HYPERTENSION
     Route: 048
     Dates: start: 20020401
  4. SIMVASTATIN [Concomitant]
     Indication: HYPERCHOLESTEROLAEMIA
     Route: 048
     Dates: start: 20020401
  5. SEVREDOL [Concomitant]
     Indication: PAIN
     Dosage: TOTAL DAILY DOSE: 20 MG
     Route: 048
     Dates: start: 20071001, end: 20081002
  6. SEVREDOL [Concomitant]
     Dosage: TOTAL DAILY DOSE: 30 MG
     Route: 048
     Dates: start: 20081002
  7. MST [Concomitant]
     Indication: PAIN
     Route: 048
     Dates: start: 20071001, end: 20080925
  8. MST [Concomitant]
     Route: 048
     Dates: start: 20080925, end: 20081030
  9. LACTULOSE [Concomitant]
     Indication: CONSTIPATION PROPHYLAXIS
     Route: 048
     Dates: start: 20080801
  10. SENNA [Concomitant]
     Indication: CONSTIPATION PROPHYLAXIS
     Route: 048
     Dates: start: 20080801
  11. METOCLOPRAMIDE [Concomitant]
     Indication: NAUSEA
     Dosage: TOTAL DAILY DOSE: 30 MG
     Route: 048
     Dates: start: 20080801
  12. ASPIRIN [Concomitant]
     Indication: PROPHYLAXIS
     Route: 048
     Dates: start: 20080401
  13. OMEPRAZOLE [Concomitant]
     Indication: DRUG USE FOR UNKNOWN INDICATION
     Dosage: TOTAL DAILY DOSE: 40 MG
     Dates: start: 20020401
  14. LACRI-LUBE [Concomitant]
     Indication: DRUG USE FOR UNKNOWN INDICATION
     Dosage: TOPICAL TO RIGHT EYE
     Route: 061

REACTIONS (4)
  - DIARRHOEA [None]
  - LETHARGY [None]
  - NAUSEA [None]
  - VOMITING [None]
